FAERS Safety Report 4743726-2 (Version None)
Quarter: 2005Q3

REPORT INFORMATION
  Report Type: 
  Country: None (occurrence: None)
  Receive Date: 20050812
  Receipt Date: 20050810
  Transmission Date: 20060218
  Serious: Yes (Hospitalization)
  Sender: FDA-Public Use
  Company Number: US-GLAXOSMITHKLINE-A0569683A

PATIENT
  Age: 47 Year
  Sex: Female

DRUGS (40)
  1. SEREVENT [Suspect]
     Indication: ASTHMA
     Dosage: 1PUFF TWICE PER DAY
     Route: 055
  2. NEURONTIN [Concomitant]
  3. ATIVAN [Concomitant]
  4. NPH INSULIN [Concomitant]
  5. NOVALOX [Concomitant]
  6. REGULAR INSULIN [Concomitant]
  7. ANTIVERT [Concomitant]
  8. AVANDIA [Concomitant]
  9. GLUCOTROL XL [Concomitant]
  10. GLUCOPHAGE [Concomitant]
  11. VENTOLIN HFA [Concomitant]
  12. ZYRTEC [Concomitant]
  13. SINGULAIR [Concomitant]
  14. FLONASE [Concomitant]
  15. IPRATROPII BROMIDUM [Concomitant]
  16. ALBUTEROL SULFATE [Concomitant]
  17. DILTIAZEM [Concomitant]
  18. COMBIVENT [Concomitant]
  19. LASIX [Concomitant]
  20. POTASSIUM CHLORIDE [Concomitant]
  21. LIPITOR [Concomitant]
  22. ECOTRIN [Concomitant]
  23. AMITRIPTYLINE [Concomitant]
  24. FLEXERIL [Concomitant]
  25. PERCOCET [Concomitant]
  26. BACTROBAN [Concomitant]
  27. AUGMENTIN XR [Concomitant]
  28. PREVACID [Concomitant]
  29. PROVERA [Concomitant]
  30. BUSPAR [Concomitant]
  31. PROZAC [Concomitant]
  32. TOPAMAX [Concomitant]
  33. PREDNISONE [Concomitant]
  34. FLOVENT [Concomitant]
  35. DIFLUCAN [Concomitant]
  36. MULTI-VITAMIN [Concomitant]
  37. VITAMIN B COMPLEX CAP [Concomitant]
  38. FOLIC ACID [Concomitant]
  39. VITAMIN E [Concomitant]
  40. ASCORBIC ACID [Concomitant]

REACTIONS (9)
  - BACK PAIN [None]
  - CONVULSION [None]
  - DRUG INEFFECTIVE [None]
  - DYSKINESIA [None]
  - MUSCLE SPASMS [None]
  - PHARMACEUTICAL PRODUCT COMPLAINT [None]
  - PNEUMONIA [None]
  - RESPIRATORY DISORDER [None]
  - TREMOR [None]
